FAERS Safety Report 6919434-6 (Version None)
Quarter: 2010Q3

REPORT INFORMATION
  Report Type: 
  Country: None (occurrence: None)
  Receive Date: 20100811
  Receipt Date: 20100810
  Transmission Date: 20110219
  Serious: Yes (Other)
  Sender: FDA-Public Use
  Company Number: B0633801A

PATIENT
  Age: 42 Year

DRUGS (1)
  1. LAMIVUDINE-HBV [Suspect]
     Route: 065

REACTIONS (4)
  - ABDOMINAL PAIN [None]
  - NEPHROLITHIASIS [None]
  - PAIN [None]
  - RED BLOOD CELLS URINE [None]
